FAERS Safety Report 6962568-0 (Version None)
Quarter: 2010Q3

REPORT INFORMATION
  Report Type: 
  Country: None (occurrence: None)
  Receive Date: 20100902
  Receipt Date: 20100824
  Transmission Date: 20110219
  Serious: Yes (Other)
  Sender: FDA-Public Use
  Company Number: US-JNJCH-2010019093

PATIENT
  Age: 17 Year
  Sex: Female

DRUGS (1)
  1. VISINE-A [Suspect]
     Indication: PRODUCT USED FOR UNKNOWN INDICATION
     Dosage: TEXT:UNSPECIFIED
     Route: 047
     Dates: start: 20100624, end: 20100624

REACTIONS (1)
  - MYDRIASIS [None]
